FAERS Safety Report 16258824 (Version 1)
Quarter: 2019Q2

REPORT INFORMATION
  Report Type: Spontaneous
  Country: PL (occurrence: PL)
  Receive Date: 20190501
  Receipt Date: 20190501
  Transmission Date: 20190711
  Serious: Yes (Life-Threatening)
  Sender: FDA-Public Use
  Company Number: PL-TEVA-2019-PL-1043271

PATIENT
  Age: 58 Year
  Sex: Female
  Weight: 64 kg

DRUGS (1)
  1. CARBOPLATIN. [Suspect]
     Active Substance: CARBOPLATIN
     Indication: OVARIAN CANCER
     Route: 042
     Dates: start: 20161109, end: 20161109

REACTIONS (4)
  - Asthenia [Unknown]
  - Altered state of consciousness [Unknown]
  - Dyspnoea [Unknown]
  - Pulse absent [Unknown]

NARRATIVE: CASE EVENT DATE: 20161109
